FAERS Safety Report 7457475-3 (Version None)
Quarter: 2011Q2

REPORT INFORMATION
  Report Type: 
  Country: None (occurrence: None)
  Receive Date: 20110504
  Receipt Date: 20110426
  Transmission Date: 20111010
  Serious: No
  Sender: FDA-Public Use
  Company Number: CA-ELI_LILLY_AND_COMPANY-CA201104008087

PATIENT
  Age: 64 Year
  Sex: Male

DRUGS (2)
  1. CIALIS [Suspect]
     Dosage: 5 MG, UNK
  2. ANTIHYPERTENSIVES [Concomitant]
     Indication: HYPERTENSION

REACTIONS (1)
  - DIPLOPIA [None]
